FAERS Safety Report 13989538 (Version 1)
Quarter: 2017Q3

REPORT INFORMATION
  Report Type: Spontaneous
  Country: RU (occurrence: RU)
  Receive Date: 20170920
  Receipt Date: 20170920
  Transmission Date: 20171128
  Serious: Yes (Hospitalization)
  Sender: FDA-Public Use
  Company Number: RU-ASTRAZENECA-2017SE95103

PATIENT
  Age: 70 Year
  Sex: Male
  Weight: 139.3 kg

DRUGS (10)
  1. LANTUS [Concomitant]
     Active Substance: INSULIN GLARGINE
  2. LIPRIMAR [Concomitant]
     Active Substance: ATORVASTATIN CALCIUM
  3. FORXIGA [Suspect]
     Active Substance: DAPAGLIFLOZIN
     Indication: TYPE 1 DIABETES MELLITUS
     Route: 048
     Dates: start: 20170502
  4. CARDIOMAGNYL [Concomitant]
     Active Substance: ASPIRIN\MAGNESIUM HYDROXIDE
  5. FORXIGA [Suspect]
     Active Substance: DAPAGLIFLOZIN
     Indication: TYPE 2 DIABETES MELLITUS
     Route: 048
     Dates: start: 20170502
  6. VEROSPIRON [Concomitant]
     Active Substance: SPIRONOLACTONE
  7. CONCOR [Concomitant]
     Active Substance: BISOPROLOL FUMARATE
  8. PRESTARIUM [Concomitant]
     Active Substance: PERINDOPRIL
  9. DIABETON [Concomitant]
     Active Substance: GLICLAZIDE
  10. DIUVER [Concomitant]
     Active Substance: TORSEMIDE

REACTIONS (3)
  - Off label use [Not Recovered/Not Resolved]
  - Product use in unapproved indication [Not Recovered/Not Resolved]
  - Intervertebral disc protrusion [Unknown]

NARRATIVE: CASE EVENT DATE: 2017
